FAERS Safety Report 5638538-1 (Version None)
Quarter: 2008Q1

REPORT INFORMATION
  Report Type: 
  Country: None (occurrence: None)
  Receive Date: 20080226
  Receipt Date: 20070607
  Transmission Date: 20080703
  Serious: No
  Sender: FDA-Public Use
  Company Number: A0645575A

PATIENT
  Age: 83 Year
  Sex: Female

DRUGS (11)
  1. IMITREX [Suspect]
     Indication: MIGRAINE
     Route: 058
     Dates: start: 19920101
  2. IMITREX [Concomitant]
     Route: 045
  3. FOSPRIL [Concomitant]
  4. HYDROCHLOROTHIAZIDE [Concomitant]
  5. COLESTIPOL HYDROCHLORIDE [Concomitant]
  6. FOSAMAX [Concomitant]
  7. LUTEIN [Concomitant]
  8. PULMICORT [Concomitant]
  9. ASTELIN [Concomitant]
     Route: 045
  10. FLONASE [Concomitant]
     Route: 045
  11. BENEFIBER [Concomitant]

REACTIONS (3)
  - DRUG INEFFECTIVE [None]
  - PAIN IN EXTREMITY [None]
  - PHARMACEUTICAL PRODUCT COMPLAINT [None]
